FAERS Safety Report 20684270 (Version 1)
Quarter: 2022Q2

REPORT INFORMATION
  Report Type: Spontaneous
  Country: US (occurrence: None)
  Receive Date: 20220405
  Receipt Date: 20220405
  Transmission Date: 20220721
  Serious: Yes (Hospitalization)
  Sender: FDA-Public Use
  Company Number: None

PATIENT
  Sex: Male

DRUGS (22)
  1. OMNITROPE [Suspect]
     Active Substance: SOMATROPIN
     Indication: Hypopituitarism
     Route: 058
     Dates: start: 20200325
  2. BACLOFEN [Concomitant]
     Active Substance: BACLOFEN
  3. CALCIUM CIT TAB [Concomitant]
  4. CELEBREX CAP [Concomitant]
  5. COENZYME Q10 [Concomitant]
     Active Substance: DIETARY SUPPLEMENT\UBIDECARENONE
  6. CYMBALTA CAP [Concomitant]
  7. HYDROCORT TAB [Concomitant]
  8. HYDROXYZINE POW HCL [Concomitant]
  9. LEVOTHYROXIN TAB [Concomitant]
  10. LISINOPRIL TAB [Concomitant]
  11. MAGNESIUM TAB [Concomitant]
  12. MILK THISTLE CAP [Concomitant]
  13. PREVAGEN CAP [Concomitant]
  14. PRILOSEC OTC [Concomitant]
  15. PROBIOTIC CAP [Concomitant]
  16. PROMETHAZINE TAB [Concomitant]
  17. SIMVASTATIN TAB [Concomitant]
  18. SUPER B-100 [Concomitant]
  19. TESTOSTERONE INJ [Concomitant]
  20. TRAZODONE TAB [Concomitant]
  21. VITAMIN D3 [Concomitant]
     Active Substance: CHOLECALCIFEROL
  22. ZN-50 [Concomitant]

REACTIONS (2)
  - Hospitalisation [None]
  - Therapy interrupted [None]
